FAERS Safety Report 24864719 (Version 1)
Quarter: 2025Q1

REPORT INFORMATION
  Report Type: Spontaneous
  Country: CA (occurrence: CA)
  Receive Date: 20250121
  Receipt Date: 20250121
  Transmission Date: 20250409
  Serious: Yes (Other)
  Sender: TEVA
  Company Number: CA-TEVA-VS-3288745

PATIENT
  Age: 51 Year
  Sex: Female

DRUGS (1)
  1. CEPHALEXIN [Suspect]
     Active Substance: CEPHALEXIN
     Indication: Beta haemolytic streptococcal infection
     Route: 048

REACTIONS (2)
  - Swollen tongue [Unknown]
  - Cough [Unknown]
